FAERS Safety Report 5806045-9 (Version None)
Quarter: 2008Q3

REPORT INFORMATION
  Report Type: 
  Country: None (occurrence: None)
  Receive Date: 20080710
  Receipt Date: 20080611
  Transmission Date: 20090109
  Serious: Yes (Other)
  Sender: FDA-Public Use
  Company Number: DE-ASTRAZENECA-2008PK00941

PATIENT
  Age: 644 Month
  Sex: Female
  Weight: 50 kg

DRUGS (1)
  1. ATACAND [Suspect]
     Indication: HYPERTENSION
     Route: 048
     Dates: start: 20070901

REACTIONS (2)
  - MUSCLE RUPTURE [None]
  - MYALGIA [None]
